FAERS Safety Report 12754799 (Version 4)
Quarter: 2016Q3

REPORT INFORMATION
  Report Type: Spontaneous
  Country: US (occurrence: US)
  Receive Date: 20160915
  Receipt Date: 20160929
  Transmission Date: 20161109
  Serious: Yes (Other)
  Sender: FDA-Public Use
  Company Number: US-JNJFOC-20160907400

PATIENT
  Age: 31 Year
  Sex: Male
  Weight: 65.77 kg

DRUGS (1)
  1. LISTERINE TOTAL CARE ZERO FRESH MINT [Suspect]
     Active Substance: SODIUM FLUORIDE
     Indication: DENTAL DISORDER PROPHYLAXIS
     Dosage: ABOUT AT OUNCE, SWISHED FOR ABOUT 60 SECOND. STARTED USING IT ABOUT A MONTH AGO.
     Route: 048
     Dates: start: 2016, end: 2016

REACTIONS (1)
  - Chemical burn of gastrointestinal tract [Not Recovered/Not Resolved]

NARRATIVE: CASE EVENT DATE: 2016
